FAERS Safety Report 6717784-X (Version None)
Quarter: 2010Q2

REPORT INFORMATION
  Report Type: 
  Country: None (occurrence: None)
  Receive Date: 20100503
  Receipt Date: 20100419
  Transmission Date: 20101027
  Serious: No
  Sender: FDA-Public Use
  Company Number: 7000024

PATIENT
  Age: 35 Year
  Sex: Female

DRUGS (3)
  1. REBIF [Suspect]
     Indication: MULTIPLE SCLEROSIS
     Dosage: 44 MCG, 3 IN 1 WK; SUBCUTANEOUS
     Route: 058
     Dates: start: 20100211, end: 20100414
  2. TRAMADOL HCL [Concomitant]
  3. IBUPROFEN [Concomitant]

REACTIONS (5)
  - CONSTIPATION [None]
  - DIZZINESS [None]
  - ENDOMETRIOSIS [None]
  - FEELING ABNORMAL [None]
  - HEPATIC ENZYME INCREASED [None]
